FAERS Safety Report 11971844 (Version 2)
Quarter: 2016Q1

REPORT INFORMATION
  Report Type: Spontaneous
  Country: US (occurrence: US)
  Receive Date: 20160128
  Receipt Date: 20160325
  Transmission Date: 20160526
  Serious: Yes (Death)
  Sender: FDA-Public Use
  Company Number: US-PFIZER INC-2016048916

PATIENT
  Age: 74 Year
  Sex: Male

DRUGS (2)
  1. INLYTA [Suspect]
     Active Substance: AXITINIB
     Dosage: UNK
  2. ANYTAL [Concomitant]
     Dosage: 5 MG, 2X/DAY
     Dates: start: 201401

REACTIONS (2)
  - Arteriosclerosis coronary artery [Unknown]
  - Cardiac arrest [Fatal]
